FAERS Safety Report 9841962 (Version 1)
Quarter: 2014Q1

REPORT INFORMATION
  Report Type: Spontaneous
  Country: IL (occurrence: IL)
  Receive Date: 20140124
  Receipt Date: 20140124
  Transmission Date: 20141002
  Serious: Yes (Other)
  Sender: FDA-Public Use
  Company Number: IL-PERRIGO-14IL000672

PATIENT
  Sex: Female

DRUGS (1)
  1. RECTOGESIC 0.4% 140-66-31709 [Suspect]
     Indication: PRODUCT USED FOR UNKNOWN INDICATION
     Dosage: SINGLE
     Route: 061
     Dates: start: 20140113, end: 20140113

REACTIONS (2)
  - Dizziness [Unknown]
  - Presyncope [Unknown]
